FAERS Safety Report 25815679 (Version 3)
Quarter: 2025Q3

REPORT INFORMATION
  Report Type: Report from Study
  Country: US (occurrence: US)
  Receive Date: 20250918
  Receipt Date: 20250922
  Transmission Date: 20251021
  Serious: Yes (Hospitalization, Other)
  Sender: ABBVIE
  Company Number: US-ABBVIE-6462640

PATIENT
  Age: 61 Year
  Sex: Male

DRUGS (1)
  1. CREON [Suspect]
     Active Substance: PANCRELIPASE AMYLASE\PANCRELIPASE LIPASE\PANCRELIPASE PROTEASE
     Indication: Pancreatic failure
     Route: 048
     Dates: start: 202504

REACTIONS (8)
  - Gastric haemorrhage [Unknown]
  - Weight decreased [Not Recovered/Not Resolved]
  - Haematemesis [Unknown]
  - Diarrhoea haemorrhagic [Unknown]
  - Gait inability [Unknown]
  - Hypotension [Unknown]
  - Haemorrhage [Unknown]
  - Headache [Unknown]

NARRATIVE: CASE EVENT DATE: 20250101
